FAERS Safety Report 7669863-0 (Version None)
Quarter: 2011Q3

REPORT INFORMATION
  Report Type: 
  Country: None (occurrence: None)
  Receive Date: 20110808
  Receipt Date: 20110729
  Transmission Date: 20111222
  Serious: Yes (Other)
  Sender: FDA-Public Use
  Company Number: US-ABBOTT-11P-163-0842625-00

PATIENT
  Sex: Female

DRUGS (10)
  1. MERCAPTOPURINE [Concomitant]
     Dates: start: 20100714
  2. HUMIRA [Suspect]
     Route: 058
  3. FERRLECIT [Concomitant]
     Indication: IRON DEFICIENCY ANAEMIA
     Dates: start: 20090615
  4. HUMIRA [Suspect]
     Indication: CROHN'S DISEASE
     Route: 058
     Dates: start: 20080926, end: 20080926
  5. HUMIRA [Suspect]
     Route: 058
  6. OMEPRAZOLE [Concomitant]
     Indication: GASTROOESOPHAGEAL REFLUX DISEASE
     Dates: start: 20090313
  7. PREMARIN [Concomitant]
     Indication: HORMONE REPLACEMENT THERAPY
     Dates: start: 20080611
  8. EFFEXOR [Concomitant]
     Indication: DEPRESSION
     Dates: start: 20070716
  9. ENTOCORT EC [Concomitant]
     Indication: CROHN'S DISEASE
     Dates: start: 20090615
  10. MERCAPTOPURINE [Concomitant]
     Indication: CROHN'S DISEASE
     Dates: start: 20100322, end: 20100714

REACTIONS (1)
  - CONVULSION [None]
